FAERS Safety Report 17861538 (Version 1)
Quarter: 2020Q2

REPORT INFORMATION
  Report Type: Spontaneous
  Country: US (occurrence: US)
  Receive Date: 20200604
  Receipt Date: 20200604
  Transmission Date: 20200714
  Serious: No
  Sender: FDA-Public Use
  Company Number: NVSC2020US155603

PATIENT
  Sex: Female

DRUGS (1)
  1. COSENTYX [Suspect]
     Active Substance: SECUKINUMAB
     Indication: PRODUCT USED FOR UNKNOWN INDICATION
     Dosage: 300 MG (2XPENS)
     Route: 065

REACTIONS (4)
  - Product leakage [Unknown]
  - Pruritus [Unknown]
  - Accidental exposure to product [Unknown]
  - Incorrect dose administered [Unknown]
